FAERS Safety Report 6431536-X (Version None)
Quarter: 2009Q4

REPORT INFORMATION
  Report Type: 
  Country: None (occurrence: None)
  Receive Date: 20091103
  Receipt Date: 20091019
  Transmission Date: 20100525
  Serious: Yes (Life-Threatening)
  Sender: FDA-Public Use
  Company Number: 02100-JPN-06-0440

PATIENT
  Age: 70 Year
  Sex: Male
  Weight: 49 kg

DRUGS (6)
  1. PLETAL [Suspect]
     Indication: CEREBRAL INFARCTION
     Dosage: 81 MG,QD; ORAL
     Route: 048
     Dates: start: 20050608, end: 20060908
  2. PAPPEN G (KETOPROFEN) TAPE (NCLUDING POULTICE) [Concomitant]
  3. CADEMESIN (DOXAZOSIN MESILATE) [Concomitant]
  4. METHYCOOL (MECOBALAMIN) TABLET [Concomitant]
  5. GIBONZ (TIZANIDINE HYDROCHLORIDE) TABLET [Concomitant]
  6. BLOSTAR M (FAMOTIDINE) TABLET [Concomitant]

REACTIONS (4)
  - ATRIOVENTRICULAR BLOCK COMPLETE [None]
  - MYOCARDIAL ISCHAEMIA [None]
  - PRINZMETAL ANGINA [None]
  - VERTIGO [None]
